FAERS Safety Report 6309376-1 (Version None)
Quarter: 2009Q3

REPORT INFORMATION
  Report Type: 
  Country: None (occurrence: None)
  Receive Date: 20090814
  Receipt Date: 20090804
  Transmission Date: 20100115
  Serious: Yes (Other)
  Sender: FDA-Public Use
  Company Number: US-ROCHE-638810

PATIENT
  Sex: Female
  Weight: 59 kg

DRUGS (20)
  1. BONIVA [Suspect]
     Indication: OSTEOPOROSIS
     Route: 048
     Dates: start: 20061214, end: 20090510
  2. INSULIN [Concomitant]
     Route: 058
     Dates: start: 19900101
  3. INSULIN [Concomitant]
     Dosage: DRUG: INSULIN PURIFIED REGULAR (PORK) SOLN
     Route: 058
     Dates: start: 20070711
  4. PREMARIN [Concomitant]
     Indication: OSTEOPOROSIS
     Dosage: DOSE: 0.9 (UNIT NOT REPORTED), PER DAY
     Route: 048
     Dates: start: 19950101
  5. PREMARIN [Concomitant]
     Dosage: QUANTITY: 90, REFILLS: 3; AS DIRECTED.
     Route: 048
     Dates: start: 20061214
  6. SYNTHROID [Concomitant]
     Indication: HYPOTHYROIDISM
     Dosage: DOSE: 0.075 (UNIT NOT REPORTED), PER DAY
     Route: 048
     Dates: start: 19950101
  7. SYNTHROID [Concomitant]
     Route: 048
     Dates: start: 20070711
  8. LISINOPRIL [Concomitant]
     Indication: HYPERTENSION
     Dosage: DOSE: 20 (UNIT NOT REPORTED), PER DAY
     Route: 048
     Dates: start: 20050101
  9. LISINOPRIL [Concomitant]
     Route: 048
     Dates: start: 20070711
  10. CELEBREX [Concomitant]
     Dosage: DOSE: 200 (UNIT NOT REPORTED), PER DAY
     Route: 048
     Dates: start: 20010101
  11. CELEBREX [Concomitant]
     Dosage: QUANTITY: 90, REFILLS: 3
     Route: 048
     Dates: start: 20070711
  12. CYCLOBENZAPRINE HCL [Concomitant]
     Dosage: DRUG: CYCLOBENZAPRINE HCL 5 MG TABLET, QUANTITY: 180, REFILLS: 3
     Dates: start: 20090711
  13. DRISDOL [Concomitant]
     Dosage: DRUG: DRISDOL 50000 UNIT CAPSULE.
     Dates: start: 20080428
  14. HUMALOG [Concomitant]
     Dosage: DRUG: HUMALOG 100 U/ML SOLUTION, QUANTITY: 90
     Dates: start: 20081124
  15. NASONEX [Concomitant]
     Dosage: DRUG: NASONEX 50 MCG/ACT SUSPENSION, DOSAGE REPORTED AS: 2 SPRAYS IN EACH NOSTRIL, QTY: 1, REFILL: 4
     Dates: start: 20090605
  16. PROMETHAZINE HCL [Concomitant]
     Indication: NAUSEA
     Dosage: AS NEEDED., DRUG: PROMETHAZINE HCL,  QUANTITY: 30
     Dates: start: 20090714
  17. SULFAMETHOXAZOLE AND TRIMETHOPRIM DOUBLE STRENGTH [Concomitant]
     Dosage: STRENGTH REPORTED AS 800-160 MG, DOSAGE REPORTED AS 1 TABLET TWICE DAILY UNTIL FINISHED, QTY: 30
     Dates: start: 20090714
  18. TERBINAFINE HCL [Concomitant]
     Dosage: AS DIRECTED. QTY: 90.
     Dates: start: 20090710
  19. TRIAZ CLEANSER [Concomitant]
     Dosage: FREQUENCY: ONE OR TWICE DAILY, QUANTITY: 340.2, REFILL: 2.
     Dates: start: 20060921
  20. VANIQA [Concomitant]
     Dosage: QUANTITY: 30, REFILL: 6.
     Dates: start: 20060921

REACTIONS (1)
  - FEMUR FRACTURE [None]
